FAERS Safety Report 8809039 (Version 4)
Quarter: 2012Q4

REPORT INFORMATION
  Report Type: 
  Country: FR (occurrence: FR)
  Receive Date: 20120926
  Receipt Date: 20121203
  Transmission Date: 20130627
  Serious: Yes (Other)
  Sender: FDA-Public Use
  Company Number: FR-TEVA-359403ISR

PATIENT
  Age: 64 Year
  Sex: Male

DRUGS (2)
  1. COPAXONE [Suspect]
     Indication: RELAPSING-REMITTING MULTIPLE SCLEROSIS
     Route: 058
     Dates: start: 2010, end: 20120901
  2. PROZAC 20MG [Concomitant]
     Indication: MAJOR DEPRESSION
     Dosage: 20 Milligram Daily;
     Route: 048

REACTIONS (1)
  - Embolia cutis medicamentosa [Recovered/Resolved]
